FAERS Safety Report 9632526 (Version 1)
Quarter: 2013Q4

REPORT INFORMATION
  Report Type: Report from Study
  Country: JP (occurrence: JP)
  Receive Date: 20131018
  Receipt Date: 20131018
  Transmission Date: 20140711
  Serious: Yes (Death)
  Sender: FDA-Public Use
  Company Number: JP-BRISTOL-MYERS SQUIBB COMPANY-19588607

PATIENT
  Age: 86 Year
  Sex: Male

DRUGS (2)
  1. ARIPIPRAZOLE [Suspect]
     Indication: DEMENTIA ALZHEIMER^S TYPE
     Route: 048
     Dates: start: 20120305, end: 20130125
  2. RISPERIDONE [Suspect]
     Dosage: 0.5 MG/DAY ORAL,FROM 28NOV12 TO 25JAN13
     Route: 048
     Dates: start: 20120309, end: 20121127

REACTIONS (1)
  - Death [Fatal]
